FAERS Safety Report 6193413-1 (Version None)
Quarter: 2009Q2

REPORT INFORMATION
  Report Type: 
  Country: None (occurrence: None)
  Receive Date: 20090518
  Receipt Date: 20080701
  Transmission Date: 20091009
  Serious: No
  Sender: FDA-Public Use
  Company Number: US-ABBOTT-08P-163-0460387-00

PATIENT
  Sex: Male
  Weight: 68.1 kg

DRUGS (2)
  1. AZMACORT [Suspect]
     Indication: ASTHMA
     Route: 055
  2. VERAPIMIL [Concomitant]
     Indication: TACHYCARDIA
     Route: 048

REACTIONS (2)
  - BRONCHIAL IRRITATION [None]
  - DYSGEUSIA [None]
